FAERS Safety Report 14012205 (Version 1)
Quarter: 2017Q3

REPORT INFORMATION
  Report Type: Spontaneous
  Country: US (occurrence: US)
  Receive Date: 20170926
  Receipt Date: 20170926
  Transmission Date: 20171128
  Serious: Yes (Hospitalization)
  Sender: FDA-Public Use
  Company Number: US-JNJFOC-20170918539

PATIENT
  Sex: Female

DRUGS (1)
  1. INVOKANA [Suspect]
     Active Substance: CANAGLIFLOZIN
     Indication: PRODUCT USED FOR UNKNOWN INDICATION
     Dosage: HALF A DOSE
     Route: 065
     Dates: start: 20170615

REACTIONS (12)
  - Loss of consciousness [Unknown]
  - Nasopharyngitis [Unknown]
  - Confusional state [Unknown]
  - Urinary tract infection [Unknown]
  - Pain [Unknown]
  - Asthenia [Unknown]
  - Off label use [Unknown]
  - Pollakiuria [Unknown]
  - Dehydration [Unknown]
  - Drug prescribing error [Unknown]
  - Tremor [Unknown]
  - Dizziness [Unknown]

NARRATIVE: CASE EVENT DATE: 201706
